FAERS Safety Report 11392307 (Version 2)
Quarter: 2016Q3

REPORT INFORMATION
  Report Type: Spontaneous
  Country: PT (occurrence: PT)
  Receive Date: 20150818
  Receipt Date: 20160913
  Transmission Date: 20161109
  Serious: Yes (Disabling)
  Sender: FDA-Public Use
  Company Number: PT-GILEAD-2015-0167329

PATIENT
  Age: 44 Year
  Sex: Male

DRUGS (5)
  1. MIRTAZAPINA [Concomitant]
     Active Substance: MIRTAZAPINE
     Route: 048
  2. MIRTAZAPINA [Concomitant]
     Active Substance: MIRTAZAPINE
     Route: 048
  3. HARVONI [Suspect]
     Active Substance: LEDIPASVIR\SOFOSBUVIR
     Indication: HEPATITIS C
     Dosage: 1 DF, QD
     Route: 048
     Dates: start: 20150630
  4. ANSILOR [Concomitant]
     Route: 048
  5. ANSILOR [Concomitant]
     Route: 048

REACTIONS (4)
  - Dizziness [Not Recovered/Not Resolved]
  - Headache [Not Recovered/Not Resolved]
  - Pain in extremity [Not Recovered/Not Resolved]
  - Muscular weakness [Not Recovered/Not Resolved]

NARRATIVE: CASE EVENT DATE: 20150630
